FAERS Safety Report 7722447-8 (Version None)
Quarter: 2011Q3

REPORT INFORMATION
  Report Type: 
  Country: None (occurrence: None)
  Receive Date: 20110825
  Receipt Date: 20110727
  Transmission Date: 20111222
  Serious: Yes (Hospitalization)
  Sender: FDA-Public Use
  Company Number: 15967938

PATIENT
  Age: 50 Year
  Sex: Male

DRUGS (4)
  1. CISPLATIN [Suspect]
     Indication: GASTROOESOPHAGEAL CANCER
     Dosage: 80 MILLIGRAM/SQ. METER CYCLICAL, IV
     Route: 042
     Dates: start: 20101123
  2. XELODA [Suspect]
     Indication: GASTROOESOPHAGEAL CANCER
     Dosage: 1000 MILLIGRAM/SQ. METER, ORAL
     Route: 048
     Dates: start: 20101123
  3. WARFARIN SODIUM [Suspect]
  4. CETUXIMAB [Suspect]
     Indication: GASTROOESOPHAGEAL CANCER
     Dosage: 250 MILLIGRAM/SQ. METER 1/1 WEEK, IV
     Route: 042
     Dates: start: 20101123

REACTIONS (1)
  - INTERNATIONAL NORMALISED RATIO INCREASED [None]
